FAERS Safety Report 8889440 (Version 1)
Quarter: 2012Q4

REPORT INFORMATION
  Report Type: Spontaneous
  Country: US (occurrence: None)
  Receive Date: 20121102
  Receipt Date: 20121102
  Transmission Date: 20130627
  Serious: Yes (Disabling)
  Sender: FDA-Public Use
  Company Number: None

PATIENT
  Sex: Male
  Weight: 23.59 kg

DRUGS (1)
  1. MONTELUKAST [Suspect]
     Indication: ALLERGIC ASTHMA
     Route: 048
     Dates: start: 20120829, end: 20121029

REACTIONS (2)
  - Tic [None]
  - Eye movement disorder [None]
